FAERS Safety Report 18592959 (Version 1)
Quarter: 2020Q4

REPORT INFORMATION
  Report Type: Spontaneous
  Country: US (occurrence: US)
  Receive Date: 20201208
  Receipt Date: 20201208
  Transmission Date: 20210114
  Serious: Yes (Other)
  Sender: FDA-Public Use
  Company Number: US-PFIZER INC-2020482306

PATIENT
  Age: 78 Year
  Sex: Male

DRUGS (1)
  1. TAFAMIDIS [Suspect]
     Active Substance: TAFAMIDIS MEGLUMINE
     Indication: AMYLOIDOSIS
     Dosage: 61 MG

REACTIONS (3)
  - Dyspnoea [Recovering/Resolving]
  - Dementia Alzheimer^s type [Unknown]
  - Fatigue [Unknown]

NARRATIVE: CASE EVENT DATE: 20201027
